FAERS Safety Report 24393389 (Version 1)
Quarter: 2024Q4

REPORT INFORMATION
  Report Type: Spontaneous
  Country: US (occurrence: None)
  Receive Date: 20241003
  Receipt Date: 20241003
  Transmission Date: 20250115
  Serious: No
  Sender: Public
  Company Number: None

PATIENT
  Sex: Female

DRUGS (3)
  1. AMBRISENTAN [Suspect]
     Active Substance: AMBRISENTAN
     Indication: Pulmonary hypertension
     Dosage: FREQUENCY : DAILY;?
     Route: 048
  2. SILDENAFIL [Suspect]
     Active Substance: SILDENAFIL
  3. POTASSIUM BICARB/CHLORIDE [Concomitant]

REACTIONS (15)
  - Drug ineffective [None]
  - Cardiac disorder [None]
  - Sinus disorder [None]
  - Swelling face [None]
  - Device use issue [None]
  - Hot flush [None]
  - Throat tightness [None]
  - Dizziness [None]
  - Muscle spasms [None]
  - Carpal tunnel syndrome [None]
  - Cubital tunnel syndrome [None]
  - Nephrolithiasis [None]
  - Polycythaemia vera [None]
  - Arthritis [None]
  - Pain in extremity [None]
